FAERS Safety Report 18930044 (Version 2)
Quarter: 2022Q2

REPORT INFORMATION
  Report Type: Spontaneous
  Country: CH (occurrence: CH)
  Receive Date: 20210223
  Receipt Date: 20220416
  Transmission Date: 20220720
  Serious: Yes (Other)
  Sender: FDA-Public Use
  Company Number: None

PATIENT
  Age: 57 Year
  Sex: Female

DRUGS (2)
  1. DILTIAZEM [Interacting]
     Active Substance: DILTIAZEM
     Route: 065
     Dates: start: 202012
  2. AROMASIN [Interacting]
     Active Substance: EXEMESTANE
     Route: 065
     Dates: start: 202012, end: 20210112

REACTIONS (3)
  - Anxiety [Recovered/Resolved]
  - Agitation [Recovered/Resolved]
  - Drug interaction [Recovered/Resolved]

NARRATIVE: CASE EVENT DATE: 20201201
